FAERS Safety Report 21464685 (Version 4)
Quarter: 2024Q1

REPORT INFORMATION
  Report Type: Spontaneous
  Country: US (occurrence: US)
  Receive Date: 20221017
  Receipt Date: 20240220
  Transmission Date: 20240410
  Serious: No
  Sender: FDA-Public Use
  Company Number: US-BRISTOL-MYERS SQUIBB COMPANY-2022-121441

PATIENT
  Age: 70 Year
  Sex: Male
  Weight: 68.04 kg

DRUGS (2)
  1. REVLIMID [Suspect]
     Active Substance: LENALIDOMIDE
     Indication: Plasma cell myeloma
     Dosage: 21D ON 7D OFF
     Route: 048
     Dates: start: 20221001
  2. REVLIMID [Suspect]
     Active Substance: LENALIDOMIDE
     Dosage: 21D ON 7D OFF
     Route: 048

REACTIONS (7)
  - Dizziness [Not Recovered/Not Resolved]
  - Fatigue [Unknown]
  - Gastroenteritis viral [Unknown]
  - Nausea [Unknown]
  - Flatulence [Unknown]
  - Product dose omission issue [Unknown]
  - Nasopharyngitis [Unknown]
